FAERS Safety Report 15266750 (Version 8)
Quarter: 2023Q2

REPORT INFORMATION
  Report Type: Report from Study
  Country: US (occurrence: US)
  Receive Date: 20180810
  Receipt Date: 20230531
  Transmission Date: 20230722
  Serious: Yes (Other)
  Sender: FDA-Public Use
  Company Number: US-JAZZ-2018-US-012020

PATIENT
  Sex: Female

DRUGS (50)
  1. XYREM [Suspect]
     Active Substance: SODIUM OXYBATE
     Indication: Insomnia
     Dosage: 2.25 G, BID
     Route: 048
     Dates: start: 201608, end: 201609
  2. XYREM [Suspect]
     Active Substance: SODIUM OXYBATE
     Indication: Somnolence
     Dosage: DOSE ADJUSTMENT
     Route: 048
     Dates: start: 201609, end: 201612
  3. XYREM [Suspect]
     Active Substance: SODIUM OXYBATE
     Indication: Narcolepsy
     Dosage: 4.5 G, BID
     Route: 048
     Dates: start: 201612
  4. AMLODIPINE BESYLATE [Suspect]
     Active Substance: AMLODIPINE BESYLATE
     Indication: Peripheral coldness
     Dosage: UNKNOWN DOSE
  5. PRIMIDONE [Concomitant]
     Active Substance: PRIMIDONE
     Indication: Product used for unknown indication
     Dosage: UNK
     Dates: start: 20180701
  6. ROSUVASTATIN CALCIUM [Concomitant]
     Active Substance: ROSUVASTATIN CALCIUM
     Indication: Product used for unknown indication
     Dosage: 0010, QD
     Dates: start: 20180129
  7. TRAMADOL HCL [Concomitant]
     Active Substance: TRAMADOL HYDROCHLORIDE
     Indication: Product used for unknown indication
     Dosage: UNK
     Dates: start: 20171128, end: 20171128
  8. TRAMADOL HCL [Concomitant]
     Active Substance: TRAMADOL HYDROCHLORIDE
     Dosage: UNK
     Dates: start: 20000501, end: 20170702
  9. LEXAPRO [Concomitant]
     Active Substance: ESCITALOPRAM OXALATE
     Indication: Product used for unknown indication
     Dosage: UNK
     Dates: start: 20171109
  10. METAXALONE [Concomitant]
     Active Substance: METAXALONE
     Indication: Product used for unknown indication
     Dosage: UNK
     Dates: start: 20170701, end: 20170901
  11. METAXALONE [Concomitant]
     Active Substance: METAXALONE
     Dosage: UNK
     Dates: start: 20061201, end: 20160930
  12. HERBALS\TURMERIC [Concomitant]
     Active Substance: HERBALS\TURMERIC
     Indication: Product used for unknown indication
     Dosage: UNK
     Dates: start: 20170212
  13. DILAUDID [Concomitant]
     Active Substance: HYDROMORPHONE HYDROCHLORIDE
     Indication: Product used for unknown indication
     Dosage: UNK
     Dates: start: 20170210, end: 20170213
  14. DIETARY SUPPLEMENT\HERBALS\MILK THISTLE [Concomitant]
     Active Substance: MILK THISTLE
     Indication: Product used for unknown indication
     Dosage: UNK
     Dates: start: 20170101
  15. ARMOUR THYROID [Concomitant]
     Active Substance: THYROID, PORCINE
     Indication: Product used for unknown indication
     Dosage: 90 MG
     Dates: start: 20141201, end: 20161031
  16. ARMOUR THYROID [Concomitant]
     Active Substance: THYROID, PORCINE
     Dosage: 60 MG
     Dates: start: 20161101
  17. MEPERIDINE [Concomitant]
     Active Substance: MEPERIDINE
     Indication: Product used for unknown indication
     Dosage: 50 MG
     Dates: start: 20161012, end: 20161019
  18. MEPERIDINE [Concomitant]
     Active Substance: MEPERIDINE
     Dosage: 100 MG
     Dates: end: 20170215
  19. COLACE [Concomitant]
     Active Substance: DOCUSATE SODIUM
     Indication: Product used for unknown indication
     Dosage: UNK
     Dates: start: 20160822, end: 20160825
  20. IRON [Concomitant]
     Active Substance: IRON
     Indication: Product used for unknown indication
     Dosage: UNK
     Dates: start: 20160822, end: 20160825
  21. ASCORBIC ACID [Concomitant]
     Active Substance: ASCORBIC ACID
     Indication: Product used for unknown indication
     Dosage: UNK
     Dates: start: 20160822, end: 20161122
  22. IODINE [Concomitant]
     Active Substance: IODINE
     Indication: Product used for unknown indication
     Dosage: UNK
     Dates: start: 20160801, end: 20170702
  23. MAGNESIUM OXIDE [Concomitant]
     Active Substance: MAGNESIUM OXIDE
     Indication: Product used for unknown indication
     Dosage: UNK
     Dates: start: 20160801, end: 20161122
  24. THYROSOL [Concomitant]
     Indication: Product used for unknown indication
     Dosage: UNK
     Dates: start: 20160801, end: 20161031
  25. TRIPLE OMEGA COMPLEX 3-6-9 [Concomitant]
     Indication: Product used for unknown indication
     Dosage: UNK
     Dates: start: 20160801, end: 20180701
  26. TOCOPHEROL [Concomitant]
     Active Substance: TOCOPHEROL
     Indication: Product used for unknown indication
     Dosage: UNK
     Dates: start: 20160801, end: 20170123
  27. CYCLOBENZAPRINE [Concomitant]
     Active Substance: CYCLOBENZAPRINE
     Indication: Product used for unknown indication
     Dosage: UNK
     Dates: start: 20160701, end: 20161006
  28. LUNESTA [Concomitant]
     Active Substance: ESZOPICLONE
     Indication: Product used for unknown indication
     Dosage: UNK
     Dates: start: 20160201, end: 20160830
  29. ATROVENT HFA [Concomitant]
     Active Substance: IPRATROPIUM BROMIDE
     Indication: Product used for unknown indication
     Dosage: UNK
     Dates: start: 20151001, end: 20151206
  30. NUVIGIL [Concomitant]
     Active Substance: ARMODAFINIL
     Indication: Product used for unknown indication
     Dosage: UNK
     Dates: start: 20150201, end: 20160531
  31. CYMBALTA [Concomitant]
     Active Substance: DULOXETINE HYDROCHLORIDE
     Indication: Product used for unknown indication
     Dosage: UNK
     Dates: start: 20141201, end: 20171109
  32. FIORICET [Concomitant]
     Active Substance: ACETAMINOPHEN\BUTALBITAL\CAFFEINE
     Indication: Product used for unknown indication
     Dosage: UNK
     Dates: start: 20141201, end: 20161031
  33. XYZAL [Concomitant]
     Active Substance: LEVOCETIRIZINE DIHYDROCHLORIDE
     Indication: Product used for unknown indication
     Dosage: UNK
     Dates: start: 20141201
  34. ASPIRIN [Concomitant]
     Active Substance: ASPIRIN
     Indication: Product used for unknown indication
     Dosage: UNK
     Dates: start: 20131001
  35. VITAMIN D3 [Concomitant]
     Active Substance: CHOLECALCIFEROL
     Indication: Product used for unknown indication
     Dosage: UNK
     Dates: start: 20110901
  36. MELATONIN [Concomitant]
     Active Substance: MELATONIN
     Indication: Product used for unknown indication
     Dosage: UNK
     Dates: start: 20110501
  37. SINGULAIR [Concomitant]
     Active Substance: MONTELUKAST SODIUM
     Indication: Product used for unknown indication
     Dosage: UNK
     Dates: start: 20061201, end: 20161006
  38. NAPROXEN [Concomitant]
     Active Substance: NAPROXEN
     Indication: Product used for unknown indication
     Dosage: UNK
     Dates: start: 20061001, end: 20160930
  39. XANAX [Concomitant]
     Active Substance: ALPRAZOLAM
     Indication: Product used for unknown indication
     Dosage: UNK
     Dates: start: 20060401, end: 20170702
  40. ALBUTEROL [Concomitant]
     Active Substance: ALBUTEROL
     Indication: Product used for unknown indication
     Dosage: UNK
     Dates: start: 20030501, end: 20160831
  41. DIPHENHYDRAMINE [Concomitant]
     Active Substance: DIPHENHYDRAMINE
     Indication: Product used for unknown indication
     Dosage: UNK
     Dates: end: 20160930
  42. ESTRACE [Concomitant]
     Active Substance: ESTRADIOL
     Indication: Product used for unknown indication
  43. IBUPROFEN [Concomitant]
     Active Substance: IBUPROFEN
     Indication: Product used for unknown indication
  44. MUCINEX [Concomitant]
     Active Substance: GUAIFENESIN
     Indication: Product used for unknown indication
     Dosage: 1,200-60 MG
  45. MUCINEX [Concomitant]
     Active Substance: GUAIFENESIN
     Dosage: 600 MG
  46. ACETAMINOPHEN [Concomitant]
     Active Substance: ACETAMINOPHEN
     Indication: Product used for unknown indication
  47. OXYGEN [Concomitant]
     Active Substance: OXYGEN
     Indication: Product used for unknown indication
     Dosage: UNK
     Dates: start: 20200201
  48. MULTIVIT [VITAMINS NOS] [Concomitant]
     Indication: Product used for unknown indication
     Dosage: WOMEN^S 50 PLUS MULTIVIT
     Dates: start: 20200101
  49. VITAMIN C [Concomitant]
     Active Substance: ASCORBIC ACID
     Indication: Product used for unknown indication
     Dosage: CAPLET
     Dates: start: 20200101
  50. SUDAFED 12 HOUR [Concomitant]
     Active Substance: PSEUDOEPHEDRINE HYDROCHLORIDE
     Indication: Product used for unknown indication
     Dosage: UNK
     Dates: start: 20210124

REACTIONS (7)
  - Polycythaemia [Recovering/Resolving]
  - Post procedural complication [Not Recovered/Not Resolved]
  - Heart rate irregular [Not Recovered/Not Resolved]
  - Peripheral coldness [Unknown]
  - Rash [Not Recovered/Not Resolved]
  - Anaemia [Not Recovered/Not Resolved]
  - Hypopnoea [Recovered/Resolved]
